FAERS Safety Report 4565361-1 (Version None)
Quarter: 2005Q1

REPORT INFORMATION
  Report Type: 
  Country: None (occurrence: None)
  Receive Date: 20050126
  Receipt Date: 20050111
  Transmission Date: 20050727
  Serious: Yes (Death, Other)
  Sender: FDA-Public Use
  Company Number: USA041183331

PATIENT
  Age: 77 Year
  Sex: Male
  Weight: 32 kg

DRUGS (6)
  1. XIGRIS [Suspect]
     Indication: SEPSIS
     Dosage: 24 UG/KG/HR
     Dates: start: 20041104, end: 20041102
  2. CLINDAMYCIN [Concomitant]
  3. ROCEPHIN [Concomitant]
  4. VANCOMYCIN [Concomitant]
  5. DOPAMINE HCL [Concomitant]
  6. MEROPENEM [Concomitant]

REACTIONS (4)
  - ACUTE MYOCARDIAL INFARCTION [None]
  - IMMUNOSUPPRESSION [None]
  - MULTI-ORGAN FAILURE [None]
  - THERAPY NON-RESPONDER [None]
